FAERS Safety Report 7215854-3 (Version None)
Quarter: 2010Q4

REPORT INFORMATION
  Report Type: 
  Country: None (occurrence: None)
  Receive Date: 20101229
  Receipt Date: 20101220
  Transmission Date: 20110411
  Serious: Yes (Death, Other)
  Sender: FDA-Public Use
  Company Number: WAES 1012USA03324

PATIENT
  Age: 70 Year
  Sex: Male
  Weight: 114.76 kg

DRUGS (10)
  1. DECADRON [Suspect]
     Indication: MULTIPLE MYELOMA
     Dosage: 40 MG/DAILY/PO
     Route: 048
     Dates: start: 20100608, end: 20101029
  2. INJ BENDAMUSTINE UNK [Suspect]
     Indication: MULTIPLE MYELOMA
     Dosage: 80 MG/DAILY/IV
     Route: 042
     Dates: start: 20100608, end: 20101029
  3. VELCADE [Suspect]
     Indication: MULTIPLE MYELOMA
     Dosage: 1.3 MG/M[2] /DAILY/IV
     Route: 042
     Dates: start: 20100608, end: 20101105
  4. COUMADIN [Concomitant]
  5. COZAAR [Concomitant]
  6. CRESTOR [Concomitant]
  7. NEURONTIN [Concomitant]
  8. ZOMETA [Concomitant]
  9. ALLOPURINOL [Concomitant]
  10. DILTIAZEM HYDROCHLORIDE [Concomitant]

REACTIONS (12)
  - ACTIVATED PARTIAL THROMBOPLASTIN TIME PROLONGED [None]
  - AGONAL RHYTHM [None]
  - ATRIAL FIBRILLATION [None]
  - ATRIAL FLUTTER [None]
  - BUNDLE BRANCH BLOCK RIGHT [None]
  - CARDIAC ARREST [None]
  - CAROTID PULSE ABNORMAL [None]
  - DYSPNOEA [None]
  - FALL [None]
  - INTERNATIONAL NORMALISED RATIO INCREASED [None]
  - PROTHROMBIN TIME PROLONGED [None]
  - TROPONIN INCREASED [None]
